FAERS Safety Report 20140956 (Version 4)
Quarter: 2022Q1

REPORT INFORMATION
  Report Type: Report from Study
  Country: US (occurrence: US)
  Receive Date: 20211202
  Receipt Date: 20220123
  Transmission Date: 20220423
  Serious: No
  Sender: FDA-Public Use
  Company Number: US-NOVARTISTESTPH-NVSC2021US273695

PATIENT
  Sex: Female

DRUGS (1)
  1. KISQALI [Suspect]
     Active Substance: RIBOCICLIB
     Indication: Breast cancer
     Dosage: 600 MG, QD
     Route: 048
     Dates: start: 20211113

REACTIONS (9)
  - Lymphoedema [Recovering/Resolving]
  - Epistaxis [Not Recovered/Not Resolved]
  - Pain of skin [Recovered/Resolved]
  - Night sweats [Recovered/Resolved]
  - Night sweats [Not Recovered/Not Resolved]
  - Visual impairment [Recovering/Resolving]
  - Skin odour abnormal [Not Recovered/Not Resolved]
  - Headache [Recovered/Resolved]
  - Diarrhoea [Recovered/Resolved]
